FAERS Safety Report 4906103-7 (Version None)
Quarter: 2006Q1

REPORT INFORMATION
  Report Type: 
  Country: None (occurrence: None)
  Receive Date: 20060209
  Receipt Date: 20060127
  Transmission Date: 20060701
  Serious: Yes (Congenital Anomaly)
  Sender: FDA-Public Use
  Company Number: PHBS2006FR01541

PATIENT
  Sex: Female

DRUGS (4)
  1. TEGRETOL [Suspect]
     Route: 064
  2. TIAPRIDAL [Suspect]
     Route: 064
  3. TRILEPTAL [Suspect]
     Route: 064
  4. URBANYL [Suspect]
     Route: 064

REACTIONS (3)
  - BONE FISTULA [None]
  - DRUG EXPOSURE DURING PREGNANCY [None]
  - MONARTHRITIS [None]
